FAERS Safety Report 18734194 (Version 1)
Quarter: 2021Q1

REPORT INFORMATION
  Report Type: Spontaneous
  Country: ES (occurrence: ES)
  Receive Date: 20210113
  Receipt Date: 20210113
  Transmission Date: 20210419
  Serious: Yes (Death, Other)
  Sender: FDA-Public Use
  Company Number: NVSC2021ES005439

PATIENT
  Age: 76 Year
  Sex: Male
  Weight: 83 kg

DRUGS (4)
  1. FUROSEMIDE. [Suspect]
     Active Substance: FUROSEMIDE
     Indication: POLYURIA
     Dosage: LA VELOCIDAD DE PC FUROSEMIDA FUE VARIANDO A LO LARGO DE LOS D?AS, RECIBIENDO LA SIGUIENTE DOSIS DE
     Route: 042
     Dates: start: 20200328, end: 20200331
  2. LOPINAVIR,RITONAVIR [Interacting]
     Active Substance: LOPINAVIR\RITONAVIR
     Indication: COVID-19
     Dosage: 400 MG, Q12H
     Route: 048
     Dates: start: 20200323, end: 20200403
  3. TOCILIZUMAB. [Interacting]
     Active Substance: TOCILIZUMAB
     Indication: COVID-19
     Dosage: 600 MG, (TOTAL)
     Route: 042
     Dates: start: 20200324, end: 20200325
  4. HYDROXYCHLOROQUINE [Interacting]
     Active Substance: HYDROXYCHLOROQUINE
     Indication: COVID-19
     Dosage: 400 MG (DESPUES 200 MG C/12 H)
     Route: 048
     Dates: start: 20200323, end: 20200401

REACTIONS (3)
  - Acute kidney injury [Recovered/Resolved]
  - Pancreatitis acute [Fatal]
  - Hypernatraemia [Recovered/Resolved]

NARRATIVE: CASE EVENT DATE: 20200329
